FAERS Safety Report 6996961-7 (Version None)
Quarter: 2010Q3

REPORT INFORMATION
  Report Type: 
  Country: None (occurrence: None)
  Receive Date: 20100918
  Receipt Date: 20090814
  Transmission Date: 20110219
  Serious: No
  Sender: FDA-Public Use
  Company Number: US-WYE-H10616309

PATIENT
  Sex: Female

DRUGS (4)
  1. EFFEXOR XR [Suspect]
     Indication: PAIN
     Route: 048
     Dates: start: 20090701
  2. EFFEXOR XR [Suspect]
     Indication: DEPRESSION
     Dosage: UNKNOWN
     Route: 048
     Dates: start: 20060101, end: 20090701
  3. VICODIN [Concomitant]
  4. ESTROGEN NOS [Concomitant]

REACTIONS (1)
  - VAGINAL DISCHARGE [None]
